FAERS Safety Report 25765812 (Version 1)
Quarter: 2025Q3

REPORT INFORMATION
  Report Type: Spontaneous
  Country: US (occurrence: US)
  Receive Date: 20250905
  Receipt Date: 20250905
  Transmission Date: 20251021
  Serious: No
  Sender: DOMPE FARMACEUTICI
  Company Number: US-FARMAPROD-202407-2531

PATIENT
  Sex: Female

DRUGS (12)
  1. OXERVATE [Suspect]
     Active Substance: CENEGERMIN-BKBJ
     Indication: Neurotrophic keratopathy
     Route: 047
     Dates: start: 20240628
  2. OXERVATE [Suspect]
     Active Substance: CENEGERMIN-BKBJ
  3. OXERVATE [Suspect]
     Active Substance: CENEGERMIN-BKBJ
  4. VITAMIN K [Concomitant]
     Active Substance: PHYTONADIONE
  5. CALCIUM CITRATE [Concomitant]
     Active Substance: CALCIUM CITRATE
  6. VITAMIN D3 [Concomitant]
     Active Substance: CHOLECALCIFEROL
  7. COENZYME Q10 [Concomitant]
     Active Substance: DIETARY SUPPLEMENT\UBIDECARENONE
  8. FOSAMAX [Concomitant]
     Active Substance: ALENDRONATE SODIUM
  9. SIMVASTATIN [Concomitant]
     Active Substance: SIMVASTATIN
  10. LUMIGAN [Concomitant]
     Active Substance: BIMATOPROST
  11. COMBIGAN [Concomitant]
     Active Substance: BRIMONIDINE TARTRATE\TIMOLOL MALEATE
  12. LETROZOLE [Concomitant]
     Active Substance: LETROZOLE

REACTIONS (4)
  - Eye irritation [Unknown]
  - Eye pain [Not Recovered/Not Resolved]
  - Periorbital pain [Not Recovered/Not Resolved]
  - Eyelid pain [Not Recovered/Not Resolved]
